FAERS Safety Report 4899473-X (Version None)
Quarter: 2006Q1

REPORT INFORMATION
  Report Type: 
  Country: None (occurrence: None)
  Receive Date: 20060131
  Receipt Date: 20060124
  Transmission Date: 20060701
  Serious: Yes (Hospitalization, Other)
  Sender: FDA-Public Use
  Company Number: 2006AL000251

PATIENT
  Age: 22 Month
  Sex: Female

DRUGS (1)
  1. PHENYTOIN [Suspect]
     Indication: EPILEPSY

REACTIONS (10)
  - CONVULSION [None]
  - DEPRESSED LEVEL OF CONSCIOUSNESS [None]
  - DISEASE RECURRENCE [None]
  - DRUG LEVEL DECREASED [None]
  - GRAND MAL CONVULSION [None]
  - IRRITABILITY [None]
  - PLASMODIUM FALCIPARUM INFECTION [None]
  - STATUS EPILEPTICUS [None]
  - TACHYCARDIA [None]
  - TACHYPNOEA [None]
